FAERS Safety Report 9882356 (Version 4)
Quarter: 2015Q1

REPORT INFORMATION
  Report Type: Spontaneous
  Country: US (occurrence: US)
  Receive Date: 20140207
  Receipt Date: 20150325
  Transmission Date: 20150721
  Serious: Yes (Hospitalization, Other)
  Sender: FDA-Public Use
  Company Number: US-GLAXOSMITHKLINE-A1060079A

PATIENT
  Sex: Male

DRUGS (2)
  1. JALYN [Suspect]
     Active Substance: DUTASTERIDE\TAMSULOSIN HYDROCHLORIDE
     Indication: PRODUCT USED FOR UNKNOWN INDICATION
     Dosage: UNK UNK, U
     Route: 065
     Dates: start: 20101228
  2. LANOXIN [Concomitant]
     Active Substance: DIGOXIN
     Dates: start: 20100104

REACTIONS (6)
  - Urinary retention [Not Recovered/Not Resolved]
  - Pneumonia [Unknown]
  - Malaise [Unknown]
  - Cardiac failure congestive [Unknown]
  - Drug dose omission [Not Recovered/Not Resolved]
  - Hospitalisation [Unknown]
